FAERS Safety Report 17529177 (Version 1)
Quarter: 2020Q1

REPORT INFORMATION
  Report Type: Spontaneous
  Country: GB (occurrence: GB)
  Receive Date: 20200311
  Receipt Date: 20200311
  Transmission Date: 20200409
  Serious: Yes (Other)
  Sender: FDA-Public Use
  Company Number: GB-TEVA-2020-GB-1197010

PATIENT
  Age: 54 Year
  Sex: Female
  Weight: 78 kg

DRUGS (16)
  1. DULOXETINE. [Suspect]
     Active Substance: DULOXETINE
     Dosage: 60 MG 1 DAYS
  2. ACICLOVIR [Concomitant]
     Active Substance: ACYCLOVIR
     Dosage: 1200 MG 1 DAYS
     Dates: start: 20200121
  3. MST CONTINUS [Concomitant]
     Active Substance: MORPHINE SULFATE
     Dosage: 10 MG 1 DAYS
     Dates: start: 20191030
  4. PROMETHAZINE HYDROCHLORIDE. [Concomitant]
     Active Substance: PROMETHAZINE HYDROCHLORIDE
     Dosage: AT NIGHT , 20 MG
     Dates: start: 20200113
  5. SIMVASTATIN. [Concomitant]
     Active Substance: SIMVASTATIN
     Dosage: NIGHTLY , 80 MG 1 DAYS
     Dates: start: 20191220
  6. RANITIDINE. [Concomitant]
     Active Substance: RANITIDINE
     Dosage: 150 MG 1 DAYS
     Dates: start: 20191128
  7. ESOMEPRAZOLE. [Concomitant]
     Active Substance: ESOMEPRAZOLE MAGNESIUM
     Dosage: 40 MG 1 DAYS
     Dates: start: 20191128
  8. DULOXETINE. [Suspect]
     Active Substance: DULOXETINE
     Dosage: 120 MG 1 DAYS
  9. PREDNISOLONE. [Concomitant]
     Active Substance: PREDNISOLONE
     Dosage: FOR 3 DAYS , 30 MG 1 DAYS
     Dates: start: 20200108
  10. METFORMIN [Concomitant]
     Active Substance: METFORMIN HYDROCHLORIDE
     Dosage: 2 GRAM 1 DAYS
     Dates: start: 20191125
  11. AMITRIPTYLINE [Concomitant]
     Active Substance: AMITRIPTYLINE
     Dosage: TAKE 4 AT NIGHT FOR 1 WEEK, THEN TAKE 3 AT NIGHT FOR 1 WEEK, THEN 2 AT NIGHT FOR 1 WEEK, THEN 1 AT N
     Dates: start: 20191111
  12. DOMPERIDONE [Concomitant]
     Active Substance: DOMPERIDONE
     Dosage: 30 MG 1 DAYS
     Dates: start: 20191025
  13. NEXIUM [Concomitant]
     Active Substance: ESOMEPRAZOLE MAGNESIUM
     Dosage: 40 MG 1 DAYS
     Dates: start: 20191128
  14. ESOMEPRAZOLE. [Concomitant]
     Active Substance: ESOMEPRAZOLE MAGNESIUM
     Dosage: 20 MG 1 DAYS
     Dates: start: 20200110
  15. FEXOFENADINE [Concomitant]
     Active Substance: FEXOFENADINE HYDROCHLORIDE
     Dosage: 180 MG 1 DAYS
     Dates: start: 20200108
  16. FLUCLOXACILLIN [Concomitant]
     Active Substance: FLUCLOXACILLIN
     Dosage: 2000 MG 1 DAYS
     Dates: start: 20200121

REACTIONS (2)
  - Rash pruritic [Recovering/Resolving]
  - Skin exfoliation [Unknown]

NARRATIVE: CASE EVENT DATE: 20191231
